FAERS Safety Report 7283962-7 (Version None)
Quarter: 2011Q1

REPORT INFORMATION
  Report Type: 
  Country: None (occurrence: None)
  Receive Date: 20110131
  Receipt Date: 20101231
  Transmission Date: 20110831
  Serious: Yes (Death)
  Sender: FDA-Public Use
  Company Number: AUR-APL-2011-00030

PATIENT
  Age: 16 Year
  Sex: Female

DRUGS (6)
  1. LAMOTRIGINE [Suspect]
  2. AMLODIPINE [Suspect]
  3. ACETYLSALICYLIC ACID [Suspect]
  4. METOPROLOL TARTRATE [Suspect]
  5. BUPROPION HCL [Suspect]
  6. QUETIAPINE [Suspect]

REACTIONS (3)
  - INTENTIONAL DRUG MISUSE [None]
  - TOXICITY TO VARIOUS AGENTS [None]
  - COMPLETED SUICIDE [None]
